FAERS Safety Report 9548077 (Version 1)
Quarter: 2013Q3

REPORT INFORMATION
  Report Type: Spontaneous
  Country: CH (occurrence: None)
  Receive Date: 20130920
  Receipt Date: 20130920
  Transmission Date: 20140515
  Serious: Yes (Death, Other)
  Sender: FDA-Public Use
  Company Number: 151267

PATIENT
  Age: 51 Year
  Sex: Male

DRUGS (1)
  1. CYCLOSPORINE [Suspect]
     Indication: LUNG TRANSPLANT
     Dosage: UNKNOWN, 5.62 MG/KG (USUAL DOSE MG/KG/DAY WAS 0.56)

REACTIONS (4)
  - Accidental overdose [None]
  - Brain oedema [None]
  - Mydriasis [None]
  - Intracranial pressure increased [None]
